FAERS Safety Report 8268165-1 (Version None)
Quarter: 2012Q2

REPORT INFORMATION
  Report Type: 
  Country: None (occurrence: None)
  Receive Date: 20120409
  Receipt Date: 20120323
  Transmission Date: 20120825
  Serious: Yes (Death, Other)
  Sender: FDA-Public Use
  Company Number: CA-ROCHE-1044223

PATIENT
  Sex: Male

DRUGS (14)
  1. ALBUTEROL [Concomitant]
     Dosage: 100 UG
  2. LYRICA [Concomitant]
  3. VITAMIN B1 TAB [Concomitant]
  4. ASAPHEN [Concomitant]
  5. RISEDRONATE SODIUM [Concomitant]
  6. NOVO-GESIC [Concomitant]
  7. RAMIPRIL [Concomitant]
  8. SYNTHROID [Concomitant]
  9. LUCENTIS [Suspect]
     Indication: AGE-RELATED MACULAR DEGENERATION
     Route: 050
     Dates: start: 20111016, end: 20120106
  10. ATORVASTATIN CALCIUM [Concomitant]
  11. ALFUZOSIN HCL [Concomitant]
  12. CALCIA [Concomitant]
  13. VIGAMOX [Concomitant]
     Dosage: 0.5%
  14. VITAMIN B6 [Concomitant]

REACTIONS (2)
  - CEREBROVASCULAR ACCIDENT [None]
  - DEATH [None]
